FAERS Safety Report 24101522 (Version 1)
Quarter: 2024Q3

REPORT INFORMATION
  Report Type: Spontaneous
  Country: US (occurrence: US)
  Receive Date: 20240717
  Receipt Date: 20240717
  Transmission Date: 20241017
  Serious: No
  Sender: NOVO NORDISK
  Company Number: US-NOVOPROD-1228800

PATIENT
  Age: 71 Year
  Sex: Male

DRUGS (1)
  1. OZEMPIC [Suspect]
     Active Substance: SEMAGLUTIDE
     Indication: Diabetes mellitus
     Dosage: 0.25 WEEKLY
     Route: 058
     Dates: start: 20240503

REACTIONS (9)
  - Feeling abnormal [Not Recovered/Not Resolved]
  - Early satiety [Unknown]
  - Pain [Unknown]
  - Thirst [Unknown]
  - Pollakiuria [Unknown]
  - Weight decreased [Unknown]
  - Decreased appetite [Unknown]
  - Blood glucose increased [Unknown]
  - Fatigue [Unknown]

NARRATIVE: CASE EVENT DATE: 20240501
